FAERS Safety Report 9390429 (Version 2)
Quarter: 2013Q3

REPORT INFORMATION
  Report Type: Spontaneous
  Country: US (occurrence: US)
  Receive Date: 20130709
  Receipt Date: 20130821
  Transmission Date: 20140515
  Serious: No
  Sender: FDA-Public Use
  Company Number: US-B.I. PHARMACEUTICALS,INC./RIDGEFIELD-2013-BI-19214BP

PATIENT
  Age: 79 Year
  Sex: Female

DRUGS (2)
  1. COMBIVENT [Suspect]
     Indication: CHRONIC OBSTRUCTIVE PULMONARY DISEASE
     Dosage: STRENGTH: 18 MCG / 103 MCG; DAILY DOSE: 144 MCG/ 824 MCG
     Route: 055
  2. FLOVENT [Concomitant]
     Route: 055

REACTIONS (4)
  - Glossodynia [Recovered/Resolved]
  - Gingival pain [Recovered/Resolved]
  - Sputum discoloured [Recovered/Resolved]
  - Product quality issue [Recovered/Resolved]
